FAERS Safety Report 6662522-2 (Version None)
Quarter: 2010Q1

REPORT INFORMATION
  Report Type: 
  Country: None (occurrence: None)
  Receive Date: 20100331
  Receipt Date: 20100322
  Transmission Date: 20100710
  Serious: Yes (Hospitalization)
  Sender: FDA-Public Use
  Company Number: US-AMGEN-QUU401448

PATIENT
  Sex: Male

DRUGS (1)
  1. ENBREL [Suspect]
     Indication: ANKYLOSING SPONDYLITIS
     Route: 058
     Dates: start: 20040310

REACTIONS (7)
  - CHONDROPLASTY [None]
  - HIP ARTHROPLASTY [None]
  - INJECTION SITE INDURATION [None]
  - JOINT STIFFNESS [None]
  - PAIN [None]
  - PHARYNGITIS STREPTOCOCCAL [None]
  - TENDON OPERATION [None]
